FAERS Safety Report 18722630 (Version 13)
Quarter: 2025Q1

REPORT INFORMATION
  Report Type: Spontaneous
  Country: DE (occurrence: DE)
  Receive Date: 20210111
  Receipt Date: 20250306
  Transmission Date: 20250409
  Serious: Yes (Life-Threatening, Other)
  Sender: AUROBINDO
  Company Number: DE-002147023-NVSC2020DE342764

PATIENT
  Sex: Female
  Weight: 103 kg

DRUGS (15)
  1. FULVESTRANT [Suspect]
     Active Substance: FULVESTRANT
     Indication: Breast cancer
     Route: 065
     Dates: start: 20211028
  2. LETROZOLE [Suspect]
     Active Substance: LETROZOLE
     Indication: Breast cancer metastatic
     Dosage: 2.5 MILLIGRAM, ONCE A DAY
     Route: 048
     Dates: start: 20201207
  3. LETROZOLE [Suspect]
     Active Substance: LETROZOLE
     Dosage: 2.5 MILLIGRAM, ONCE A DAY
     Route: 065
     Dates: start: 20190209
  4. LETROZOLE [Suspect]
     Active Substance: LETROZOLE
     Dosage: 2.5 MILLIGRAM, ONCE A DAY
     Route: 065
     Dates: start: 20210810
  5. KISQALI [Suspect]
     Active Substance: RIBOCICLIB
     Indication: Breast cancer metastatic
     Dosage: 600 MILLIGRAM, ONCE A DAY (DAILY DOSE) (REGIMEN 21 DAYS INTAKE, 7 DAYS PAUSE)
     Route: 048
     Dates: start: 20201207, end: 20210103
  6. KISQALI [Suspect]
     Active Substance: RIBOCICLIB
     Route: 065
     Dates: start: 20200505, end: 20210809
  7. KISQALI [Suspect]
     Active Substance: RIBOCICLIB
     Route: 065
     Dates: start: 20190607, end: 20190620
  8. KISQALI [Suspect]
     Active Substance: RIBOCICLIB
     Route: 065
     Dates: start: 20190621, end: 20191003
  9. KISQALI [Suspect]
     Active Substance: RIBOCICLIB
     Route: 065
     Dates: start: 20210810, end: 20211013
  10. KISQALI [Suspect]
     Active Substance: RIBOCICLIB
     Route: 065
     Dates: start: 20200403, end: 20200504
  11. KISQALI [Suspect]
     Active Substance: RIBOCICLIB
     Route: 065
     Dates: start: 20190209, end: 20190502
  12. KISQALI [Suspect]
     Active Substance: RIBOCICLIB
     Route: 065
     Dates: start: 20211014, end: 20220207
  13. KISQALI [Suspect]
     Active Substance: RIBOCICLIB
     Route: 065
     Dates: start: 20191012, end: 20200124
  14. KISQALI [Suspect]
     Active Substance: RIBOCICLIB
     Dosage: 400 MILLIGRAM, ONCE A DAY (REGIMEN 21 DAYS INTAKE, 7 DAYS PAUSE)
     Route: 048
     Dates: start: 20210111
  15. KISQALI [Suspect]
     Active Substance: RIBOCICLIB
     Dosage: 600 MILLIGRAM, 600 MG, (ADMINISTRATION SCHEME 21 DAYS INTAKE, 7 DAYS PAUSE)
     Route: 048
     Dates: start: 20201207, end: 20210103

REACTIONS (6)
  - Neutropenia [Recovered/Resolved]
  - Thrombocytopenia [Recovered/Resolved]
  - Neutrophil count decreased [Not Recovered/Not Resolved]
  - Leukopenia [Recovered/Resolved]
  - Blood pressure fluctuation [Not Recovered/Not Resolved]
  - Urinary tract infection [Recovered/Resolved]

NARRATIVE: CASE EVENT DATE: 20200124
